FAERS Safety Report 9531524 (Version 2)
Quarter: 2013Q4

REPORT INFORMATION
  Report Type: Spontaneous
  Country: US (occurrence: US)
  Receive Date: 20130918
  Receipt Date: 20131211
  Transmission Date: 20140711
  Serious: Yes (Other)
  Sender: FDA-Public Use
  Company Number: US-PFIZER INC-2013265689

PATIENT
  Age: 57 Year
  Sex: Female
  Weight: 69.39 kg

DRUGS (3)
  1. XELJANZ [Suspect]
     Indication: RHEUMATOID ARTHRITIS
     Dosage: 5 MG, 2X/DAY
     Route: 048
     Dates: start: 201309
  2. PREDNISONE [Concomitant]
     Dosage: UNK
  3. MORPHINE [Concomitant]
     Dosage: UNK, AS NEEDED (PRN)

REACTIONS (3)
  - Lyme disease [Unknown]
  - Constipation [Unknown]
  - Drug ineffective [Unknown]
